FAERS Safety Report 11810626 (Version 2)
Quarter: 2015Q4

REPORT INFORMATION
  Report Type: Spontaneous
  Country: GR (occurrence: GR)
  Receive Date: 20151208
  Receipt Date: 20151217
  Transmission Date: 20160305
  Serious: Yes (Other)
  Sender: FDA-Public Use
  Company Number: GR-PFIZER INC-2015427917

PATIENT
  Age: 95 Year
  Sex: Male

DRUGS (5)
  1. RIVOTRIL [Concomitant]
     Active Substance: CLONAZEPAM
     Dosage: 5 DROPS PER DAY
  2. FUGENTIN /02043401/ [Concomitant]
     Dosage: UNK
  3. EBIXA [Concomitant]
     Active Substance: MEMANTINE HYDROCHLORIDE
     Dosage: UNK
  4. GEODON [Suspect]
     Active Substance: ZIPRASIDONE HYDROCHLORIDE\ZIPRASIDONE MESYLATE
     Indication: BIPOLAR DISORDER
     Dosage: 10 MG, 1X/DAY (NIGHT)
     Route: 048
     Dates: start: 201506, end: 2015
  5. GEODON [Suspect]
     Active Substance: ZIPRASIDONE HYDROCHLORIDE\ZIPRASIDONE MESYLATE
     Dosage: 20 MG, DAILY (IN THE NIGHT)
     Route: 048
     Dates: start: 2015, end: 201511

REACTIONS (6)
  - Musculoskeletal stiffness [Recovered/Resolved]
  - Pyrexia [Recovered/Resolved]
  - C-reactive protein increased [Recovered/Resolved]
  - Arthralgia [Recovered/Resolved]
  - Infection [Recovered/Resolved]
  - Tongue disorder [Recovered/Resolved]

NARRATIVE: CASE EVENT DATE: 2015
